FAERS Safety Report 5768222-5 (Version None)
Quarter: 2008Q2

REPORT INFORMATION
  Report Type: 
  Country: None (occurrence: None)
  Receive Date: 20080609
  Receipt Date: 20080602
  Transmission Date: 20081010
  Serious: Yes (Life-Threatening)
  Sender: FDA-Public Use
  Company Number: GXKR2008DE04823

PATIENT
  Age: 49 Year
  Sex: Male

DRUGS (1)
  1. DEXAHEXAL (NGX) (DEXAMETHASONE) SOLUTION FOR INJECTION [Suspect]
     Indication: RADICULITIS BRACHIAL
     Dosage: 4 MG/ML, INTRAMUSCULAR
     Route: 030
     Dates: start: 20071213, end: 20071213

REACTIONS (1)
  - HYPERSENSITIVITY [None]
